FAERS Safety Report 21005231 (Version 2)
Quarter: 2022Q3

REPORT INFORMATION
  Report Type: Report from Study
  Country: US (occurrence: None)
  Receive Date: 20220624
  Receipt Date: 20220811
  Transmission Date: 20221026
  Serious: Yes (Other)
  Sender: FDA-Public Use
  Company Number: US-ROCHE-3116103

PATIENT
  Age: 69 Year
  Sex: Male
  Weight: 96.1 kg

DRUGS (9)
  1. VENETOCLAX [Suspect]
     Active Substance: VENETOCLAX
     Indication: B-cell lymphoma refractory
     Route: 048
     Dates: start: 20200208, end: 20200521
  2. VENETOCLAX [Suspect]
     Active Substance: VENETOCLAX
     Indication: Mantle cell lymphoma
  3. IBRUTINIB [Suspect]
     Active Substance: IBRUTINIB
     Indication: B-cell lymphoma refractory
     Dosage: 1-14 Q3W
     Route: 048
     Dates: start: 20200117, end: 20200521
  4. IBRUTINIB [Suspect]
     Active Substance: IBRUTINIB
     Indication: Mantle cell lymphoma
  5. PREDNISONE [Suspect]
     Active Substance: PREDNISONE
     Indication: B-cell lymphoma refractory
     Route: 048
     Dates: start: 20200117, end: 20200514
  6. OBINUTUZUMAB [Suspect]
     Active Substance: OBINUTUZUMAB
     Indication: B-cell lymphoma refractory
     Route: 042
     Dates: start: 20200117, end: 20200509
  7. LENALIDOMIDE [Suspect]
     Active Substance: LENALIDOMIDE
     Indication: B-cell lymphoma refractory
     Route: 048
     Dates: start: 20200117, end: 20200521
  8. NEXIUM [Concomitant]
     Active Substance: ESOMEPRAZOLE MAGNESIUM
  9. MIRALAX [Concomitant]
     Active Substance: POLYETHYLENE GLYCOL 3350

REACTIONS (2)
  - Basal cell carcinoma [Recovered/Resolved]
  - Squamous cell carcinoma [Unknown]

NARRATIVE: CASE EVENT DATE: 20220308
